FAERS Safety Report 7767397-6 (Version None)
Quarter: 2011Q3

REPORT INFORMATION
  Report Type: 
  Country: None (occurrence: None)
  Receive Date: 20110922
  Receipt Date: 20110113
  Transmission Date: 20111222
  Serious: Yes (Other)
  Sender: FDA-Public Use
  Company Number: US-ASTRAZENECA-2009UW08565

PATIENT
  Age: 44 Year
  Sex: Female
  Weight: 118.8 kg

DRUGS (17)
  1. SEROQUEL [Suspect]
     Indication: INSOMNIA
     Route: 048
     Dates: start: 20000918
  2. CYMBALTA [Concomitant]
  3. VICODIN ES [Concomitant]
     Dates: start: 20060701
  4. SEROQUEL [Suspect]
     Route: 048
     Dates: start: 20000901, end: 20061201
  5. OXYCODONE HCL [Concomitant]
     Dosage: 2 PO QD, 5-0 2 PO BID
     Route: 048
     Dates: start: 20060701
  6. DESYREL [Concomitant]
  7. PAMELOR [Concomitant]
  8. SEROQUEL [Suspect]
     Indication: DEPRESSION
     Route: 048
     Dates: start: 20000918
  9. PHEN-FEN [Concomitant]
     Dates: start: 19940101, end: 19950101
  10. ATIVAN [Concomitant]
  11. XANAX [Concomitant]
  12. ABILIFY [Concomitant]
     Dates: start: 19990601
  13. SEROQUEL [Suspect]
     Route: 048
     Dates: start: 20000901, end: 20061201
  14. MERIDIA [Concomitant]
     Dates: start: 19960101
  15. WELLBUTRIN [Concomitant]
  16. BUSPAR [Concomitant]
  17. EFFEXOR [Concomitant]

REACTIONS (5)
  - SYNCOPE [None]
  - BLOOD CHOLESTEROL INCREASED [None]
  - ASTHENIA [None]
  - DIABETIC KETOACIDOSIS [None]
  - TYPE 2 DIABETES MELLITUS [None]
